FAERS Safety Report 4814876-7 (Version None)
Quarter: 2005Q4

REPORT INFORMATION
  Report Type: 
  Country: None (occurrence: None)
  Receive Date: 20051028
  Receipt Date: 20051017
  Transmission Date: 20060501
  Serious: Yes (Disabling)
  Sender: FDA-Public Use
  Company Number: FR-ROCHE-421466

PATIENT
  Age: 11 Year
  Sex: Male
  Weight: 38 kg

DRUGS (10)
  1. CYMEVAN [Suspect]
     Indication: DRUG USE FOR UNKNOWN INDICATION
     Route: 042
     Dates: start: 20001204, end: 20001209
  2. PROGRAF [Suspect]
     Indication: DRUG USE FOR UNKNOWN INDICATION
     Route: 048
     Dates: start: 19980522
  3. PROGRAF [Suspect]
     Route: 048
     Dates: start: 19990215
  4. PROGRAF [Suspect]
     Route: 048
     Dates: start: 19990415
  5. PROGRAF [Suspect]
     Route: 048
     Dates: start: 19990515
  6. PROGRAF [Suspect]
     Route: 048
     Dates: start: 19990607
  7. PROGRAF [Suspect]
     Route: 048
     Dates: start: 19990611
  8. PROGRAF [Suspect]
     Route: 048
     Dates: start: 19990708
  9. VANCOMYCIN [Suspect]
     Indication: DRUG USE FOR UNKNOWN INDICATION
     Route: 042
     Dates: start: 20001204, end: 20001209
  10. CYCLOSPORINE [Suspect]
     Indication: DRUG USE FOR UNKNOWN INDICATION
     Route: 048
     Dates: end: 19980522

REACTIONS (5)
  - DIALYSIS [None]
  - DRUG LEVEL INCREASED [None]
  - NEPHRITIS INTERSTITIAL [None]
  - RENAL FAILURE ACUTE [None]
  - RENAL FAILURE CHRONIC [None]
